FAERS Safety Report 15452221 (Version 3)
Quarter: 2019Q1

REPORT INFORMATION
  Report Type: Spontaneous
  Country: AU (occurrence: AU)
  Receive Date: 20181001
  Receipt Date: 20190128
  Transmission Date: 20190417
  Serious: Yes (Hospitalization)
  Sender: FDA-Public Use
  Company Number: AU-MYLANLABS-2018M1071284

PATIENT
  Sex: Female

DRUGS (3)
  1. CLOZARIL [Suspect]
     Active Substance: CLOZAPINE
     Indication: SCHIZOPHRENIA
     Dosage: 450 MG, UNK
     Route: 048
     Dates: start: 20010803
  2. CLOZARIL [Suspect]
     Active Substance: CLOZAPINE
     Dosage: UNK
     Dates: start: 201811
  3. CLOZARIL [Suspect]
     Active Substance: CLOZAPINE
     Dosage: 550 MILLIGRAM, UNK
     Route: 048
     Dates: start: 20010803

REACTIONS (2)
  - Therapeutic response decreased [Unknown]
  - Mental impairment [Unknown]

NARRATIVE: CASE EVENT DATE: 2018
